FAERS Safety Report 6828144-5 (Version None)
Quarter: 2010Q3

REPORT INFORMATION
  Report Type: 
  Country: None (occurrence: None)
  Receive Date: 20100709
  Receipt Date: 20070131
  Transmission Date: 20110219
  Serious: No
  Sender: FDA-Public Use
  Company Number: US-PFIZER INC-2007006415

PATIENT
  Sex: Female
  Weight: 68.04 kg

DRUGS (6)
  1. CHANTIX [Suspect]
     Indication: SMOKING CESSATION THERAPY
     Dosage: 1MG TWICE DAILY
     Dates: start: 20070110
  2. ZYRTEC [Suspect]
     Indication: PRURITUS
     Dates: start: 20070119
  3. ZYRTEC [Suspect]
     Indication: URTICARIA
  4. LISINOPRIL [Concomitant]
     Indication: HYPERTENSION
  5. VYTORIN [Concomitant]
     Indication: BLOOD CHOLESTEROL INCREASED
  6. QUININE SULFATE [Concomitant]
     Indication: MUSCLE SPASMS

REACTIONS (4)
  - DRUG INEFFECTIVE [None]
  - MIDDLE INSOMNIA [None]
  - PRURITUS [None]
  - URTICARIA [None]
